FAERS Safety Report 8066036-7 (Version None)
Quarter: 2012Q1

REPORT INFORMATION
  Report Type: 
  Country: None (occurrence: None)
  Receive Date: 20120124
  Receipt Date: 20120117
  Transmission Date: 20120608
  Serious: No
  Sender: FDA-Public Use
  Company Number: US-B.I. PHARMACEUTICALS,INC./RIDGEFIELD-2012-BP-00947BP

PATIENT
  Sex: Female

DRUGS (19)
  1. SPIRIVA [Suspect]
     Indication: EMPHYSEMA
  2. QVAR 40 [Concomitant]
     Indication: CHRONIC OBSTRUCTIVE PULMONARY DISEASE
     Dosage: 80 MG
     Route: 055
  3. QVAR 40 [Concomitant]
     Indication: EMPHYSEMA
  4. VICODIN [Concomitant]
     Indication: ARTHRITIS
  5. VITAMIN B-12 [Concomitant]
     Indication: ROUTINE HEALTH MAINTENANCE
     Route: 048
  6. VICODIN [Concomitant]
     Indication: BACK PAIN
     Dosage: 5 MG
     Route: 048
  7. COMPLETE WOMEN'S VITAMIN [Concomitant]
     Indication: ROUTINE HEALTH MAINTENANCE
     Route: 048
  8. KLONOPIN [Concomitant]
     Dosage: 1 MG
     Route: 048
  9. ATENOLOL [Concomitant]
     Indication: HYPERTENSION
     Dosage: 50 MG
     Route: 048
  10. NITROSTAT [Concomitant]
     Indication: CHEST PAIN
     Dosage: 0.4 MG
     Route: 060
  11. FIBER THERAPY CAPSULES [Concomitant]
     Indication: ROUTINE HEALTH MAINTENANCE
     Route: 048
  12. SPIRIVA [Suspect]
     Indication: CHRONIC OBSTRUCTIVE PULMONARY DISEASE
     Dosage: 18 MCG
     Route: 055
     Dates: start: 20110101
  13. ALBUTEROL SOLUTION/NEBULIZER [Concomitant]
     Indication: EMPHYSEMA
  14. LOVASTATIN [Concomitant]
     Indication: BLOOD CHOLESTEROL INCREASED
     Dosage: 50 MG
     Route: 048
  15. ALBUTEROL SOLUTION/NEBULIZER [Concomitant]
     Indication: CHRONIC OBSTRUCTIVE PULMONARY DISEASE
     Route: 055
  16. ASCORBIC ACID [Concomitant]
     Indication: ROUTINE HEALTH MAINTENANCE
     Route: 048
  17. PRAVASTATIN [Concomitant]
     Indication: BLOOD CHOLESTEROL INCREASED
     Dosage: 40 MG
     Route: 048
  18. CYMBALTA [Concomitant]
     Indication: DEPRESSION
     Dosage: 60 MG
     Route: 048
  19. LASIX [Concomitant]
     Indication: CARDIAC FAILURE CONGESTIVE
     Dosage: 40 MG
     Route: 048

REACTIONS (1)
  - DRUG INEFFECTIVE [None]
